FAERS Safety Report 13465367 (Version 1)
Quarter: 2017Q2

REPORT INFORMATION
  Report Type: Spontaneous
  Country: US (occurrence: US)
  Receive Date: 20170420
  Receipt Date: 20170420
  Transmission Date: 20170830
  Serious: Yes (Hospitalization)
  Sender: FDA-Public Use
  Company Number: None

PATIENT
  Age: 95 Year
  Sex: Male

DRUGS (9)
  1. VITAMIN B12 [Concomitant]
     Active Substance: CYANOCOBALAMIN
  2. PREDNISONE. [Concomitant]
     Active Substance: PREDNISONE
  3. LOSARTAN. [Concomitant]
     Active Substance: LOSARTAN
  4. ZYTIGA [Suspect]
     Active Substance: ABIRATERONE ACETATE
     Indication: PROSTATE CANCER
     Route: 048
     Dates: start: 20170225
  5. CALTRATE [Concomitant]
     Active Substance: CALCIUM CARBONATE
  6. ZYTIGA [Concomitant]
     Active Substance: ABIRATERONE ACETATE
  7. MYRBETRIQ [Concomitant]
     Active Substance: MIRABEGRON
  8. FUROSEMIDE. [Concomitant]
     Active Substance: FUROSEMIDE
  9. ELIQUIS [Concomitant]
     Active Substance: APIXABAN

REACTIONS (2)
  - Dehydration [None]
  - Diarrhoea [None]
